FAERS Safety Report 7406682-4 (Version None)
Quarter: 2011Q2

REPORT INFORMATION
  Report Type: 
  Country: None (occurrence: None)
  Receive Date: 20110406
  Receipt Date: 20110406
  Transmission Date: 20111010
  Serious: Yes (Death)
  Sender: FDA-Public Use
  Company Number: None

PATIENT
  Sex: Female

DRUGS (1)
  1. XELODA [Suspect]
     Indication: OESOPHAGEAL CARCINOMA
     Dosage: 3 TABLETS BID X7D Q OTHER WK PO
     Route: 048
     Dates: start: 20101113, end: 20110326

REACTIONS (1)
  - METASTASES TO CENTRAL NERVOUS SYSTEM [None]
